FAERS Safety Report 5357385-1 (Version None)
Quarter: 2007Q2

REPORT INFORMATION
  Report Type: 
  Country: None (occurrence: None)
  Receive Date: 20070614
  Receipt Date: 20070606
  Transmission Date: 20071010
  Serious: Yes (Other)
  Sender: FDA-Public Use
  Company Number: B0475137A

PATIENT
  Age: 55 Year
  Sex: Female
  Weight: 61 kg

DRUGS (2)
  1. MALARONE [Suspect]
     Route: 048
     Dates: start: 20070501
  2. ESTRADIOL [Concomitant]
     Indication: MENOPAUSE
     Route: 048
     Dates: start: 20040501

REACTIONS (2)
  - ABDOMINAL PAIN UPPER [None]
  - RECTAL DISCHARGE [None]
